FAERS Safety Report 6674623-3 (Version None)
Quarter: 2010Q2

REPORT INFORMATION
  Report Type: 
  Country: None (occurrence: None)
  Receive Date: 20100409
  Receipt Date: 20100402
  Transmission Date: 20101027
  Serious: Yes (Life-Threatening, Hospitalization)
  Sender: FDA-Public Use
  Company Number: IT-ROCHE-695587

PATIENT
  Sex: Male
  Weight: 71 kg

DRUGS (6)
  1. METHOXY POLYETHYLENE GLYCOL-EPOETIN BETA [Suspect]
     Dosage: LAST DOSE PRIOR TO SAE:08 MARCH 2010, PERMANENTLY DISCONTINUED.
     Route: 042
     Dates: start: 20090626, end: 20100402
  2. VITAMINE C [Concomitant]
     Dosage: REPORTED AS VITAMINC 1GR, TOTAL DAILY DOSE REPORTED AS 1GLX3 PER WEEK
     Dates: start: 20060528
  3. LANTHANUM CARBONATE [Concomitant]
     Dosage: REPORTED AS LANTHANUM CARBONATE 0.75 GR, TOTAL DAILY DOSE:
     Dates: start: 20081001
  4. POLIESTIRENO SULFONATO CALCICO [Concomitant]
     Dates: start: 20081203
  5. LOSARTAN POTASSIUM [Concomitant]
     Dosage: REPORTED AS LOSARTAN 50MG, TOTAL DAILY DOSE:1/2 GM PER DAY
     Dates: start: 20071019
  6. ACETYLSALICYLIC ACID [Concomitant]
     Dosage: REPORTED AS ACETYLSALICYLIC ACID 100MG
     Dates: start: 20060601

REACTIONS (1)
  - TRANSIENT ISCHAEMIC ATTACK [None]
